FAERS Safety Report 12022555 (Version 2)
Quarter: 2017Q2

REPORT INFORMATION
  Report Type: Report from Study
  Country: None (occurrence: US)
  Receive Date: 20160206
  Receipt Date: 20170623
  Transmission Date: 20170829
  Serious: Yes (Other)
  Sender: FDA-Public Use
  Company Number: US-ABBVIE-15K-163-1473311-00

PATIENT
  Age: 30 Year
  Sex: Male

DRUGS (2)
  1. HUMIRA [Suspect]
     Active Substance: ADALIMUMAB
     Indication: CROHN^S DISEASE
     Route: 058
     Dates: start: 20140220
  2. HUMIRA [Suspect]
     Active Substance: ADALIMUMAB
     Route: 058
     Dates: end: 20170601

REACTIONS (4)
  - Crohn^s disease [Unknown]
  - Drug tolerance [Unknown]
  - Drug effect decreased [Not Recovered/Not Resolved]
  - Infusion [Unknown]

NARRATIVE: CASE EVENT DATE: 20170601
